FAERS Safety Report 4718515-5 (Version None)
Quarter: 2005Q3

REPORT INFORMATION
  Report Type: 
  Country: None (occurrence: None)
  Receive Date: 20050720
  Receipt Date: 20050712
  Transmission Date: 20060218
  Serious: Yes (Hospitalization)
  Sender: FDA-Public Use
  Company Number: PHBS2005JP09987

PATIENT
  Age: 43 Year
  Sex: Female

DRUGS (4)
  1. GLEEVEC [Suspect]
     Indication: CHRONIC MYELOID LEUKAEMIA
     Dosage: 400 MG/D
     Route: 048
     Dates: start: 20050628, end: 20050708
  2. MAGNESIUM OXIDE [Concomitant]
     Dosage: 5 G/D
     Route: 048
     Dates: start: 20050629
  3. LAXOBERON [Concomitant]
     Dosage: 10 ML/D
     Route: 048
     Dates: start: 20050630
  4. ACETAMINOPHEN [Concomitant]
     Dosage: 7 G/D
     Route: 048
     Dates: start: 20050704, end: 20050701

REACTIONS (1)
  - CHOLECYSTITIS ACUTE [None]
